FAERS Safety Report 16398605 (Version 2)
Quarter: 2019Q3

REPORT INFORMATION
  Report Type: Spontaneous
  Country: US (occurrence: US)
  Receive Date: 20190606
  Receipt Date: 20190802
  Transmission Date: 20191004
  Serious: No
  Sender: FDA-Public Use
  Company Number: US-PFIZER INC-2019066622

PATIENT
  Age: 58 Year
  Sex: Female

DRUGS (1)
  1. PRISTIQ EXTENDED-RELEASE [Suspect]
     Active Substance: DESVENLAFAXINE SUCCINATE
     Indication: MAJOR DEPRESSION
     Dosage: 150 MG, DAILY (THREE 50 MG PILLS EVERY DAY)
     Route: 048
     Dates: start: 20180328

REACTIONS (2)
  - Prescribed overdose [Unknown]
  - Withdrawal syndrome [Recovered/Resolved]
